FAERS Safety Report 8079087-3 (Version None)
Quarter: 2012Q1

REPORT INFORMATION
  Report Type: 
  Country: None (occurrence: None)
  Receive Date: 20120128
  Receipt Date: 20110816
  Transmission Date: 20120608
  Serious: No
  Sender: FDA-Public Use
  Company Number: US-ABBOTT-11P-163-0847202-00

PATIENT
  Age: 54 Year
  Sex: Female

DRUGS (4)
  1. XANAX [Concomitant]
     Indication: ANXIETY
  2. ATENOLOL [Concomitant]
     Indication: HEART RATE IRREGULAR
     Dosage: 1/2 OF 25MG
  3. MOTRIN [Concomitant]
     Indication: PSORIATIC ARTHROPATHY
  4. HUMIRA [Suspect]
     Indication: PSORIATIC ARTHROPATHY
     Dates: start: 20080401

REACTIONS (4)
  - PSORIATIC ARTHROPATHY [None]
  - RASH [None]
  - NAUSEA [None]
  - DRUG EFFECT DECREASED [None]
